FAERS Safety Report 9280880 (Version 1)
Quarter: 2013Q2

REPORT INFORMATION
  Report Type: Spontaneous
  Country: US (occurrence: US)
  Receive Date: 20130509
  Receipt Date: 20130509
  Transmission Date: 20140414
  Serious: No
  Sender: FDA-Public Use
  Company Number: US-009507513-1304USA014939

PATIENT
  Age: 28 Year
  Sex: Female

DRUGS (5)
  1. IMPLANON [Suspect]
     Indication: CONTRACEPTION
     Dosage: 1 ROD EVERY THREE YEARS
     Route: 059
     Dates: start: 2007
  2. IMPLANON [Suspect]
     Dosage: 1 DF, UNK
     Route: 059
     Dates: start: 200903
  3. IMPLANON [Suspect]
     Dosage: 1 DF, UNK
     Route: 059
  4. ADDERALL XR [Concomitant]
  5. AMBIEN [Concomitant]

REACTIONS (7)
  - Thermal burn [Recovered/Resolved]
  - Medical device complication [Unknown]
  - Overdose [Unknown]
  - Weight increased [Unknown]
  - Incorrect drug administration duration [Unknown]
  - Device dislocation [Unknown]
  - Device difficult to use [Unknown]
